FAERS Safety Report 6348272-0 (Version None)
Quarter: 2009Q3

REPORT INFORMATION
  Report Type: 
  Country: None (occurrence: None)
  Receive Date: 20090910
  Receipt Date: 20090902
  Transmission Date: 20100115
  Serious: Yes (Death, Other)
  Sender: FDA-Public Use
  Company Number: US-BAXTER-2009BH013639

PATIENT

DRUGS (1)
  1. HEPARIN SODIUM INJECTION [Suspect]
     Indication: DRUG USE FOR UNKNOWN INDICATION
     Route: 065

REACTIONS (6)
  - DEATH [None]
  - DIZZINESS [None]
  - HYPOTENSION [None]
  - LETHARGY [None]
  - NAUSEA [None]
  - UNRESPONSIVE TO STIMULI [None]
